FAERS Safety Report 22940521 (Version 2)
Quarter: 2023Q4

REPORT INFORMATION
  Report Type: Spontaneous
  Country: GB (occurrence: GB)
  Receive Date: 20230913
  Receipt Date: 20231102
  Transmission Date: 20240110
  Serious: No
  Sender: FDA-Public Use
  Company Number: GB-MHRA-MED-202308222242459910-MZNHK

PATIENT
  Sex: Female
  Weight: 118 kg

DRUGS (1)
  1. FRAGMIN [Suspect]
     Active Substance: DALTEPARIN SODIUM
     Indication: Embolism venous
     Dosage: 5000 UNITS SC TWICE A DAY
     Route: 058
     Dates: start: 20230819

REACTIONS (4)
  - Haematoma [Not Recovered/Not Resolved]
  - Pain [Unknown]
  - Swelling [Unknown]
  - Wrong technique in device usage process [Unknown]

NARRATIVE: CASE EVENT DATE: 20230822
